FAERS Safety Report 7335331-9 (Version None)
Quarter: 2011Q1

REPORT INFORMATION
  Report Type: 
  Country: None (occurrence: None)
  Receive Date: 20110307
  Receipt Date: 20110301
  Transmission Date: 20110831
  Serious: Yes (Death, Other)
  Sender: FDA-Public Use
  Company Number: GB-CUBIST-2011S1000102

PATIENT
  Sex: Male
  Weight: 100 kg

DRUGS (1)
  1. CUBICIN [Suspect]
     Indication: STAPHYLOCOCCAL BACTERAEMIA

REACTIONS (2)
  - STAPHYLOCOCCAL BACTERAEMIA [None]
  - RENAL FAILURE ACUTE [None]
